FAERS Safety Report 14434527 (Version 1)
Quarter: 2018Q1

REPORT INFORMATION
  Report Type: Spontaneous
  Country: US (occurrence: US)
  Receive Date: 20180124
  Receipt Date: 20180124
  Transmission Date: 20180509
  Serious: No
  Sender: FDA-Public Use
  Company Number: US-TARO-2017TAR00763

PATIENT
  Sex: Female
  Weight: 61.22 kg

DRUGS (2)
  1. UNSPECIFIED MEDICATIONS [Concomitant]
     Active Substance: UNSPECIFIED INGREDIENT
  2. DESOXIMETASONE. [Suspect]
     Active Substance: DESOXIMETASONE

REACTIONS (1)
  - Oral candidiasis [Recovered/Resolved]
